FAERS Safety Report 24142236 (Version 1)
Quarter: 2024Q3

REPORT INFORMATION
  Report Type: Spontaneous
  Country: US (occurrence: US)
  Receive Date: 20240726
  Receipt Date: 20240726
  Transmission Date: 20241017
  Serious: No
  Sender: ABBVIE
  Company Number: US-ABBVIE-5855867

PATIENT

DRUGS (1)
  1. UBRELVY [Suspect]
     Active Substance: UBROGEPANT
     Indication: Migraine
     Dosage: ONLY TOOK ONE FORM STRENGTH:100 MG
     Route: 048

REACTIONS (2)
  - Palpitations [Unknown]
  - Feeling abnormal [Unknown]
